FAERS Safety Report 8396717-7 (Version None)
Quarter: 2012Q2

REPORT INFORMATION
  Report Type: 
  Country: None (occurrence: None)
  Receive Date: 20120530
  Receipt Date: 20120525
  Transmission Date: 20120825
  Serious: Yes (Other)
  Sender: FDA-Public Use
  Company Number: US-PFIZER INC-2012127318

PATIENT
  Sex: Female
  Weight: 63.039 kg

DRUGS (5)
  1. LIPITOR [Suspect]
     Indication: BLOOD CHOLESTEROL INCREASED
     Dosage: UNK, DAILY
     Dates: start: 20070101, end: 20070101
  2. ZOCOR [Suspect]
     Indication: BLOOD CHOLESTEROL INCREASED
     Dosage: UNK
  3. PREMPRO [Concomitant]
     Indication: HORMONE REPLACEMENT THERAPY
     Dosage: UNK
  4. EFFEXOR XR [Concomitant]
     Indication: ANXIETY
     Dosage: 75 MG, DAILY
  5. RED YEAST RICE [Suspect]
     Indication: BLOOD CHOLESTEROL INCREASED
     Dosage: UNK

REACTIONS (5)
  - MUSCLE SPASMS [None]
  - HYPOKINESIA [None]
  - MYALGIA [None]
  - PARALYSIS [None]
  - PAIN IN EXTREMITY [None]
